FAERS Safety Report 8776980 (Version 1)
Quarter: 2012Q4

REPORT INFORMATION
  Report Type: 
  Country: FR (occurrence: FR)
  Receive Date: 20120911
  Receipt Date: 20120911
  Transmission Date: 20130627
  Serious: Yes (Death, Life-Threatening, Hospitalization)
  Sender: FDA-Public Use
  Company Number: FR-GLAXOSMITHKLINE-B0826866A

PATIENT
  Age: 61 Year
  Sex: Male

DRUGS (6)
  1. ZELITREX [Suspect]
     Indication: PRODUCT USED FOR UNKNOWN INDICATION
     Route: 048
     Dates: start: 20120606
  2. CLOFARABINE [Suspect]
     Indication: ACUTE MYELOID LEUKAEMIA
     Route: 042
     Dates: start: 20120606
  3. DELURSAN [Concomitant]
     Dates: start: 20120606
  4. PRIMPERAN [Concomitant]
     Dates: start: 20120606
  5. TOPALGIC (FRANCE) [Concomitant]
  6. STILNOX [Concomitant]

REACTIONS (6)
  - Febrile bone marrow aplasia [Fatal]
  - Neutropenia [Fatal]
  - Thrombocytopenia [Fatal]
  - Anaemia [Fatal]
  - Atrial fibrillation [Unknown]
  - Renal failure [Unknown]
